FAERS Safety Report 8969648 (Version 1)
Quarter: 2012Q4

REPORT INFORMATION
  Report Type: 
  Country: CH (occurrence: CH)
  Receive Date: 20121218
  Receipt Date: 20121218
  Transmission Date: 20130627
  Serious: Yes (Disabling, Other)
  Sender: FDA-Public Use
  Company Number: CH-TEVA-375378ISR

PATIENT
  Age: 61 Year
  Sex: Female

DRUGS (3)
  1. IBUPROFEN [Suspect]
     Indication: ANALGESIC THERAPY
     Route: 065
  2. RIVAROXABAN [Suspect]
     Indication: ANTICOAGULANT THERAPY
     Dosage: 10 Milligram Daily;
     Route: 048
  3. TRAMADOL [Concomitant]
     Indication: ANALGESIC THERAPY
     Route: 065

REACTIONS (6)
  - Extradural haematoma [Recovered/Resolved]
  - Paraplegia [Recovered/Resolved]
  - Hypoaesthesia [Recovered/Resolved]
  - Hyporeflexia [Recovered/Resolved]
  - Spinal pain [Unknown]
  - Asthenia [Unknown]
